FAERS Safety Report 21239172 (Version 1)
Quarter: 2022Q3

REPORT INFORMATION
  Report Type: Spontaneous
  Country: AU (occurrence: AU)
  Receive Date: 20220822
  Receipt Date: 20220822
  Transmission Date: 20221027
  Serious: Yes (Hospitalization)
  Sender: FDA-Public Use
  Company Number: AU-ELI_LILLY_AND_COMPANY-AU202208006026

PATIENT
  Age: 37 Year
  Sex: Male

DRUGS (3)
  1. ZYPREXA RELPREVV [Suspect]
     Active Substance: OLANZAPINE PAMOATE
     Indication: Schizophrenia
     Dosage: 300 MG, MONTHLY (1/M)
     Route: 030
  2. ZYPREXA RELPREVV [Suspect]
     Active Substance: OLANZAPINE PAMOATE
     Indication: Schizophrenia
     Dosage: 300 MG, MONTHLY (1/M)
     Route: 030
  3. ZYPREXA RELPREVV [Suspect]
     Active Substance: OLANZAPINE PAMOATE
     Indication: Schizophrenia
     Dosage: 300 MG, MONTHLY (1/M)
     Route: 030

REACTIONS (9)
  - Post-injection delirium sedation syndrome [Unknown]
  - Gait disturbance [Unknown]
  - Malaise [Unknown]
  - Dysarthria [Unknown]
  - Sedation [Unknown]
  - Delirium [Unknown]
  - Confusional state [Unknown]
  - Disorientation [Unknown]
  - Injection site haemorrhage [Unknown]

NARRATIVE: CASE EVENT DATE: 20220809
